FAERS Safety Report 4740379-4 (Version None)
Quarter: 2005Q3

REPORT INFORMATION
  Report Type: 
  Country: None (occurrence: None)
  Receive Date: 20050809
  Receipt Date: 20050809
  Transmission Date: 20060218
  Serious: Yes (Hospitalization, Other)
  Sender: FDA-Public Use
  Company Number: None

PATIENT
  Sex: Male
  Weight: 115.21 kg

DRUGS (7)
  1. VINCRISTINE [Suspect]
     Indication: ACUTE LYMPHOCYTIC LEUKAEMIA
     Dosage: SEE IMAGE
     Route: 042
     Dates: start: 20050725, end: 20050725
  2. METHOTREXATE [Suspect]
     Dosage: SEE IMAGE
     Route: 042
     Dates: start: 20050725, end: 20050725
  3. PEG ASPARAGINASE [Suspect]
     Dosage: SEE IMAGE
     Route: 015
     Dates: start: 20050726, end: 20050726
  4. PEG ASPARAGINASE [Suspect]
     Dosage: SEE IMAGE
     Route: 015
     Dates: start: 20050725
  5. METHOTREXATE [Suspect]
     Dosage: SEE IMAGE
     Route: 037
     Dates: start: 20050725, end: 20050725
  6. . [Concomitant]
     Dates: start: 20050726, end: 20050726
  7. . [Concomitant]
     Dates: start: 20050725, end: 20050725

REACTIONS (27)
  - ABDOMINAL PAIN [None]
  - BLOOD CULTURE POSITIVE [None]
  - COAGULOPATHY [None]
  - COMPUTERISED TOMOGRAM ABNORMAL [None]
  - DEHYDRATION [None]
  - DIALYSIS [None]
  - ENCEPHALOPATHY [None]
  - ESCHERICHIA INFECTION [None]
  - HEPATIC FAILURE [None]
  - HEPATIC FUNCTION ABNORMAL [None]
  - HYPERAMMONAEMIA [None]
  - HYPERBILIRUBINAEMIA [None]
  - INFECTION [None]
  - LETHARGY [None]
  - MENTAL STATUS CHANGES [None]
  - NAUSEA [None]
  - NEUTROPHIL COUNT ABNORMAL [None]
  - PYREXIA [None]
  - RENAL FAILURE [None]
  - RESPIRATORY DEPRESSION [None]
  - THROMBOCYTOPENIA [None]
  - ULTRASOUND SCAN ABNORMAL [None]
  - URINE OUTPUT DECREASED [None]
  - VEIN DISORDER [None]
  - VENOOCCLUSIVE DISEASE [None]
  - VOMITING [None]
  - WHITE BLOOD CELL COUNT INCREASED [None]
